FAERS Safety Report 13554287 (Version 1)
Quarter: 2017Q2

REPORT INFORMATION
  Report Type: Spontaneous
  Country: US (occurrence: US)
  Receive Date: 20170517
  Receipt Date: 20170517
  Transmission Date: 20170830
  Serious: Yes (Hospitalization)
  Sender: FDA-Public Use
  Company Number: US-NOVOPROD-535016

PATIENT
  Sex: Male

DRUGS (2)
  1. LEVEMIR [Concomitant]
     Active Substance: INSULIN DETEMIR
     Indication: PRODUCT USED FOR UNKNOWN INDICATION
     Dosage: UNK, BID
     Route: 058
     Dates: start: 201611
  2. NOVOLOG [Suspect]
     Active Substance: INSULIN ASPART
     Indication: PRODUCT USED FOR UNKNOWN INDICATION
     Dosage: UNK, TID BEFORE MEALS
     Route: 058
     Dates: start: 201611

REACTIONS (2)
  - Blood glucose increased [Not Recovered/Not Resolved]
  - Localised infection [Not Recovered/Not Resolved]

NARRATIVE: CASE EVENT DATE: 201702
